FAERS Safety Report 9896102 (Version 1)
Quarter: 2014Q1

REPORT INFORMATION
  Report Type: Spontaneous
  Country: US (occurrence: US)
  Receive Date: 20140213
  Receipt Date: 20140213
  Transmission Date: 20141002
  Serious: No
  Sender: FDA-Public Use
  Company Number: US-BRISTOL-MYERS SQUIBB COMPANY-19598143

PATIENT
  Age: 48 Year
  Sex: Female
  Weight: 63.49 kg

DRUGS (7)
  1. ABATACEPT SUBQ INJECTION 125MG/ML [Suspect]
     Route: 058
     Dates: start: 20130916
  2. ARAVA [Concomitant]
     Dosage: TAB
  3. PREDNISONE [Concomitant]
     Dosage: TAB
  4. VITAMIN D [Concomitant]
     Dosage: 1DF:50000UNT
  5. IMODIUM [Concomitant]
     Dosage: IMODIUM A-D CHW 2MG
  6. CALCIUM [Concomitant]
  7. MULTIVITAMIN [Concomitant]

REACTIONS (1)
  - Injection site pain [Recovered/Resolved]
